FAERS Safety Report 20375313 (Version 1)
Quarter: 2022Q1

REPORT INFORMATION
  Report Type: Spontaneous
  Country: US (occurrence: None)
  Receive Date: 20220124
  Receipt Date: 20220124
  Transmission Date: 20220424
  Serious: Yes (Hospitalization, Other)
  Sender: FDA-Public Use
  Company Number: None

PATIENT
  Age: 45 Year
  Sex: Female
  Weight: 58 kg

DRUGS (2)
  1. MOLNUPIRAVIR [Suspect]
     Active Substance: MOLNUPIRAVIR
     Indication: Product used for unknown indication
     Dates: start: 20220119, end: 20220121
  2. MOLNUPIRAVIR [Concomitant]
     Active Substance: MOLNUPIRAVIR
     Dates: start: 20220119, end: 20220121

REACTIONS (7)
  - Acute hepatic failure [None]
  - Encephalopathy [None]
  - Leukopenia [None]
  - Neutropenia [None]
  - Thrombocytopenia [None]
  - COVID-19 [None]
  - Self-medication [None]

NARRATIVE: CASE EVENT DATE: 20220122
